FAERS Safety Report 5141368-0 (Version None)
Quarter: 2006Q4

REPORT INFORMATION
  Report Type: 
  Country: None (occurrence: None)
  Receive Date: 20061101
  Receipt Date: 20060127
  Transmission Date: 20070319
  Serious: Yes (Disabling)
  Sender: FDA-Public Use
  Company Number: US-GLAXOSMITHKLINE-A0591282A

PATIENT
  Age: 47 Year
  Sex: Male

DRUGS (13)
  1. AVANDIA [Suspect]
     Dosage: 4MG TWICE PER DAY
     Route: 048
     Dates: end: 20060101
  2. LIPITOR [Concomitant]
     Route: 048
  3. MEDICATION FOR HIGH BLOOD PRESSURE [Concomitant]
  4. ALTACE [Concomitant]
     Route: 048
  5. GLIPIZIDE [Concomitant]
     Route: 048
  6. PENTOXIFYLLINE [Concomitant]
     Route: 048
  7. GLUCOTROL XL [Concomitant]
     Route: 048
  8. MOEXIPRIL HCL [Concomitant]
     Route: 048
     Dates: start: 20040401
  9. UNIVASC [Concomitant]
     Route: 048
     Dates: start: 20050301
  10. METFORMIN HCL [Concomitant]
     Route: 048
     Dates: start: 20051001
  11. ENALAPRIL MALEATE [Concomitant]
     Route: 048
     Dates: start: 20051001
  12. LOVASTATIN [Concomitant]
     Route: 048
     Dates: start: 20051001
  13. TRAMADOL HCL [Concomitant]
     Route: 048
     Dates: start: 20051201

REACTIONS (11)
  - CATARACT [None]
  - COLOUR BLINDNESS [None]
  - MACULAR OEDEMA [None]
  - NEOVASCULARISATION [None]
  - RETINAL ANEURYSM [None]
  - RETINAL DETACHMENT [None]
  - RETINAL HAEMORRHAGE [None]
  - VISION BLURRED [None]
  - VISUAL ACUITY REDUCED [None]
  - VITREOUS FLOATERS [None]
  - VITREOUS HAEMORRHAGE [None]
